FAERS Safety Report 15883089 (Version 4)
Quarter: 2025Q3

REPORT INFORMATION
  Report Type: Report from Study
  Country: GB (occurrence: GB)
  Receive Date: 20190129
  Receipt Date: 20250709
  Transmission Date: 20251021
  Serious: Yes (Hospitalization, Other)
  Sender: AUROBINDO
  Company Number: GB-AUROBINDO-AUR-APL-2019-003236

PATIENT
  Age: 60 Year
  Sex: Male

DRUGS (4)
  1. LISINOPRIL [Suspect]
     Active Substance: LISINOPRIL
     Indication: Product used for unknown indication
     Route: 065
  2. RANITIDINE [Suspect]
     Active Substance: RANITIDINE
     Indication: Product used for unknown indication
     Route: 065
  3. ASPIRIN [Suspect]
     Active Substance: ASPIRIN
     Indication: Product used for unknown indication
     Route: 065
  4. ASPIRIN [Suspect]
     Active Substance: ASPIRIN
     Indication: Product used for unknown indication
     Route: 065

REACTIONS (17)
  - Laryngeal oedema [Recovered/Resolved]
  - Pneumopericardium [Recovered/Resolved]
  - Respiratory distress [Recovered/Resolved]
  - Acute myocardial infarction [Unknown]
  - Stridor [Recovered/Resolved]
  - Subcutaneous emphysema [Recovered/Resolved]
  - Dyspnoea [Recovered/Resolved]
  - Post procedural haemorrhage [Unknown]
  - Cyanosis central [Recovered/Resolved]
  - Wheezing [Recovered/Resolved]
  - Agitation [Recovered/Resolved]
  - Pneumothorax [Recovered/Resolved]
  - Anaphylactic reaction [Unknown]
  - Haemorrhage [Recovered/Resolved]
  - Oxygen saturation decreased [Recovered/Resolved]
  - Tachycardia [Recovered/Resolved]
  - Myocardial infarction [Recovered/Resolved]
